FAERS Safety Report 23737347 (Version 1)
Quarter: 2024Q2

REPORT INFORMATION
  Report Type: Spontaneous
  Country: PL (occurrence: PL)
  Receive Date: 20240412
  Receipt Date: 20240412
  Transmission Date: 20240716
  Serious: Yes (Hospitalization, Other)
  Sender: FDA-Public Use
  Company Number: PL-SA-2016SA133007

PATIENT
  Age: 22 Year
  Sex: Female

DRUGS (21)
  1. TACROLIMUS [Suspect]
     Active Substance: TACROLIMUS
     Indication: Immunosuppression
     Dosage: UNK
     Dates: start: 201207
  2. TACROLIMUS [Suspect]
     Active Substance: TACROLIMUS
     Dosage: 0.5 MG,QD
     Dates: start: 201302
  3. TACROLIMUS [Suspect]
     Active Substance: TACROLIMUS
     Dosage: 1.5 MG,QD
     Dates: start: 2013
  4. TACROLIMUS [Suspect]
     Active Substance: TACROLIMUS
     Dosage: 0.5 MG
  5. TACROLIMUS [Suspect]
     Active Substance: TACROLIMUS
     Dosage: UNK
  6. RIBAVIRIN [Suspect]
     Active Substance: RIBAVIRIN
     Indication: Hepatitis C
     Dosage: 2 DF
     Dates: start: 20120903, end: 20121001
  7. RIBAVIRIN [Suspect]
     Active Substance: RIBAVIRIN
     Indication: Hepatitis cholestatic
     Dosage: UNK
     Dates: start: 20121014, end: 20121201
  8. RIBAVIRIN [Suspect]
     Active Substance: RIBAVIRIN
     Dosage: UNK
     Dates: start: 20130225, end: 20130527
  9. RIBAVIRIN [Suspect]
     Active Substance: RIBAVIRIN
     Dosage: 2 DF
     Dates: start: 20130909, end: 20140310
  10. MYCOPHENOLATE MOFETIL [Suspect]
     Active Substance: MYCOPHENOLATE MOFETIL
     Indication: Immunosuppression
     Dosage: UNK
     Dates: start: 201207
  11. PEGINTERFERON ALFA-2A [Suspect]
     Active Substance: PEGINTERFERON ALFA-2A
     Indication: Hepatitis C
     Dosage: UNK
     Dates: start: 20120903, end: 20121001
  12. PEGINTERFERON ALFA-2A [Suspect]
     Active Substance: PEGINTERFERON ALFA-2A
     Dosage: UNK
     Dates: start: 20121014, end: 20121201
  13. PEGINTERFERON ALFA-2A [Suspect]
     Active Substance: PEGINTERFERON ALFA-2A
     Dosage: UNK
     Dates: start: 20130225, end: 20130527
  14. PEGINTERFERON ALFA-2A [Suspect]
     Active Substance: PEGINTERFERON ALFA-2A
     Dosage: UNK
     Dates: start: 20130909, end: 20140310
  15. DACLATASVIR [Suspect]
     Active Substance: DACLATASVIR
     Indication: Hepatitis cholestatic
     Dosage: 60 MG,QD
     Dates: start: 20130225, end: 20130527
  16. TELAPREVIR [Suspect]
     Active Substance: TELAPREVIR
     Indication: Hepatitis cholestatic
     Dosage: 3 DF
     Dates: start: 20121014, end: 20121201
  17. TELAPREVIR [Suspect]
     Active Substance: TELAPREVIR
     Indication: Antiviral treatment
  18. SOFOSBUVIR [Suspect]
     Active Substance: SOFOSBUVIR
     Indication: Hepatitis cholestatic
     Dosage: 400 MG,QD
     Dates: start: 20130909
  19. PREDNISONE [Suspect]
     Active Substance: PREDNISONE
     Indication: Immunosuppression
     Dosage: UNK
     Dates: start: 201207
  20. CLOTRIMAZOLE [Concomitant]
     Active Substance: CLOTRIMAZOLE
     Indication: Product used for unknown indication
     Dosage: UNK
     Dates: start: 2012
  21. LINUM USITATISSIMUM SEED [Concomitant]
     Indication: Product used for unknown indication
     Dosage: LINOMAG: OIL CREAM

REACTIONS (10)
  - Fibrosis [Unknown]
  - Anal pruritus [Unknown]
  - Ascites [Unknown]
  - Thrombocytopenia [Unknown]
  - Neutropenia [Unknown]
  - Leukopenia [Unknown]
  - Anaemia [Unknown]
  - Genital candidiasis [Unknown]
  - Oral candidiasis [Unknown]
  - Drug ineffective [Unknown]
